FAERS Safety Report 13277426 (Version 6)
Quarter: 2017Q2

REPORT INFORMATION
  Report Type: Spontaneous
  Country: US (occurrence: US)
  Receive Date: 20170228
  Receipt Date: 20170428
  Transmission Date: 20170830
  Serious: Yes (Death)
  Sender: FDA-Public Use
  Company Number: US-CELGENEUS-USA-2017027131

PATIENT
  Age: 64 Year
  Sex: Female

DRUGS (3)
  1. ABRAXANE [Suspect]
     Active Substance: PACLITAXEL
     Dosage: 160 MILLIGRAM
     Route: 041
     Dates: start: 20150702, end: 20170216
  2. ABRAXANE [Suspect]
     Active Substance: PACLITAXEL
     Indication: PANCREATIC CARCINOMA METASTATIC
     Dosage: 230 MILLIGRAM
     Route: 041
     Dates: start: 20150205, end: 20150305
  3. ABRAXANE [Suspect]
     Active Substance: PACLITAXEL
     Dosage: 200 MILLIGRAM
     Route: 041
     Dates: start: 20150312, end: 20150625

REACTIONS (3)
  - Pancreatic carcinoma metastatic [Fatal]
  - Treatment failure [Unknown]
  - Malaise [Not Recovered/Not Resolved]

NARRATIVE: CASE EVENT DATE: 20170316
